FAERS Safety Report 8404331-X (Version None)
Quarter: 2012Q2

REPORT INFORMATION
  Report Type: 
  Country: None (occurrence: None)
  Receive Date: 20120601
  Receipt Date: 20120523
  Transmission Date: 20120825
  Serious: Yes (Hospitalization)
  Sender: FDA-Public Use
  Company Number: US-ASTRAZENECA-2010SE24114

PATIENT
  Age: 53 Year
  Sex: Male

DRUGS (2)
  1. NEXIUM [Suspect]
     Route: 048
  2. SYMBICORT [Suspect]
     Route: 055

REACTIONS (7)
  - RENAL FAILURE [None]
  - DIABETES MELLITUS [None]
  - BACTERIAL INFECTION [None]
  - HEPATIC CIRRHOSIS [None]
  - REGURGITATION [None]
  - INFECTION [None]
  - DYSPEPSIA [None]
